FAERS Safety Report 16398990 (Version 1)
Quarter: 2019Q2

REPORT INFORMATION
  Report Type: Spontaneous
  Country: DE (occurrence: DE)
  Receive Date: 20190606
  Receipt Date: 20190606
  Transmission Date: 20190711
  Serious: Yes (Other)
  Sender: FDA-Public Use
  Company Number: DE-ACTELION-A-CH2019-190987

PATIENT
  Age: 14 Year
  Sex: Male

DRUGS (2)
  1. SILDENAFIL. [Concomitant]
     Active Substance: SILDENAFIL
     Indication: UNIVENTRICULAR HEART
  2. OPSUMIT [Suspect]
     Active Substance: MACITENTAN
     Indication: UNIVENTRICULAR HEART
     Dosage: UNK
     Route: 048

REACTIONS (2)
  - Catheterisation cardiac [Unknown]
  - Therapeutic response unexpected [Unknown]

NARRATIVE: CASE EVENT DATE: 2019
